FAERS Safety Report 12074628 (Version 1)
Quarter: 2016Q1

REPORT INFORMATION
  Report Type: Report from Study
  Country: US (occurrence: US)
  Receive Date: 20160212
  Receipt Date: 20160212
  Transmission Date: 20160526
  Serious: Yes (Other)
  Sender: FDA-Public Use
  Company Number: US-GILEAD-2015-0190544

PATIENT
  Age: 71 Year
  Sex: Male

DRUGS (1)
  1. IDELALISIB [Suspect]
     Active Substance: IDELALISIB
     Indication: CHRONIC LYMPHOCYTIC LEUKAEMIA
     Dosage: 150 MG, BID
     Route: 048
     Dates: start: 20151030

REACTIONS (9)
  - Haemoglobin abnormal [Unknown]
  - Nasopharyngitis [Unknown]
  - Productive cough [Unknown]
  - Night sweats [Unknown]
  - Nasal congestion [Unknown]
  - Ear infection fungal [Unknown]
  - Bronchitis [Unknown]
  - Platelet disorder [Unknown]
  - Rhinorrhoea [Unknown]

NARRATIVE: CASE EVENT DATE: 20151215
